FAERS Safety Report 5318663-5 (Version None)
Quarter: 2007Q2

REPORT INFORMATION
  Report Type: 
  Country: None (occurrence: None)
  Receive Date: 20070508
  Receipt Date: 20070427
  Transmission Date: 20071010
  Serious: Yes (Hospitalization)
  Sender: FDA-Public Use
  Company Number: PHHO2007DK04357

PATIENT
  Age: 64 Year
  Sex: Female
  Weight: 59 kg

DRUGS (1)
  1. TAMOXIFEN CITRATE [Suspect]
     Indication: BREAST CANCER
     Dosage: DOUBLE BLIND
     Route: 048
     Dates: start: 20021009, end: 20070221

REACTIONS (6)
  - BREAST CANCER [None]
  - HYSTERECTOMY [None]
  - MALIGNANT NEOPLASM PROGRESSION [None]
  - METASTASES TO UTERUS [None]
  - SALPINGO-OOPHORECTOMY BILATERAL [None]
  - VAGINAL HAEMORRHAGE [None]
